FAERS Safety Report 10749111 (Version 1)
Quarter: 2015Q1

REPORT INFORMATION
  Report Type: Spontaneous
  Country: US (occurrence: None)
  Receive Date: 20150128
  Receipt Date: 20150128
  Transmission Date: 20150721
  Serious: No
  Sender: FDA-Public Use
  Company Number: None

PATIENT
  Age: 97 Year
  Sex: Female
  Weight: 68.49 kg

DRUGS (8)
  1. OMEPRAZOLE. [Concomitant]
     Active Substance: OMEPRAZOLE
  2. TAMIFLU [Suspect]
     Active Substance: OSELTAMIVIR PHOSPHATE
     Indication: INFLUENZA
     Route: 048
     Dates: start: 20141224, end: 20150107
  3. ACETAMINOPHEN. [Concomitant]
     Active Substance: ACETAMINOPHEN
  4. VITAMIN C [Concomitant]
     Active Substance: ASCORBIC ACID
  5. COUMADIN [Concomitant]
     Active Substance: WARFARIN SODIUM
  6. DETROL [Concomitant]
     Active Substance: TOLTERODINE TARTRATE
  7. LASIX [Concomitant]
     Active Substance: FUROSEMIDE
  8. VITAMIN D [Concomitant]
     Active Substance: CHOLECALCIFEROL

REACTIONS (7)
  - Fluid intake reduced [None]
  - International normalised ratio increased [None]
  - Nausea [None]
  - Malaise [None]
  - Hypophagia [None]
  - Blood pressure decreased [None]
  - Dehydration [None]

NARRATIVE: CASE EVENT DATE: 20150110
